APPROVED DRUG PRODUCT: CLIMARA
Active Ingredient: ESTRADIOL
Strength: 0.075MG/24HR
Dosage Form/Route: FILM, EXTENDED RELEASE;TRANSDERMAL
Application: N020375 | Product #003 | TE Code: AB2
Applicant: BAYER HEALTHCARE PHARMACEUTICALS INC
Approved: Mar 23, 1998 | RLD: Yes | RS: No | Type: RX